APPROVED DRUG PRODUCT: SCANDONEST PLAIN
Active Ingredient: MEPIVACAINE HYDROCHLORIDE
Strength: 3%
Dosage Form/Route: INJECTABLE;INJECTION
Application: A088387 | Product #001
Applicant: DEPROCO INC
Approved: Oct 10, 1984 | RLD: No | RS: Yes | Type: RX